FAERS Safety Report 25331252 (Version 6)
Quarter: 2025Q4

REPORT INFORMATION
  Report Type: Spontaneous
  Country: CA (occurrence: CA)
  Receive Date: 20250519
  Receipt Date: 20251119
  Transmission Date: 20260118
  Serious: Yes (Other)
  Sender: PFIZER
  Company Number: CA-PFIZER INC-202500101928

PATIENT
  Age: 65 Year
  Sex: Female

DRUGS (14)
  1. RUXIENCE [Suspect]
     Active Substance: RITUXIMAB-PVVR
     Indication: Rheumatoid arthritis
     Dosage: 1000 MG, DAY 1 AND DAY 15
     Route: 042
     Dates: start: 20240408, end: 20240422
  2. RUXIENCE [Suspect]
     Active Substance: RITUXIMAB-PVVR
     Dosage: 1000 MG, DAY 1 AND DAY 15
     Route: 042
     Dates: start: 20241023
  3. RUXIENCE [Suspect]
     Active Substance: RITUXIMAB-PVVR
     Dosage: 1000 MG, DAY 1 AND DAY 15
     Route: 042
     Dates: start: 20241107
  4. RUXIENCE [Suspect]
     Active Substance: RITUXIMAB-PVVR
     Dosage: 1000 MG, 27 WEEKS (DAY 1 AND DAY 15)
     Route: 042
     Dates: start: 20250513
  5. RUXIENCE [Suspect]
     Active Substance: RITUXIMAB-PVVR
     Dosage: 1000 MG, 2 WEEKS, DAY 1 AND DAY 15
     Route: 042
     Dates: start: 20250527
  6. RUXIENCE [Suspect]
     Active Substance: RITUXIMAB-PVVR
     Dosage: 1000 MG, DAY 1 RETREATMENT (DAY 1 AND DAY 15)
     Route: 042
     Dates: start: 20251112
  7. CITALOPRAM [Concomitant]
     Active Substance: CITALOPRAM
     Dosage: 40 MG (SIVEM)
  8. ESOMEPRAZOLE [Concomitant]
     Active Substance: ESOMEPRAZOLE
     Dosage: 40 MG (SIVEM)
  9. JAMP CALCIUM + VITAMIN D [Concomitant]
     Dosage: 500 MG
  10. NICODERM CQ [Concomitant]
     Active Substance: NICOTINE
     Dosage: 14 MG (TIMBRE)
  11. ORPHENADRINE [Concomitant]
     Active Substance: ORPHENADRINE
     Dosage: 100 MG (SANDOZ)
  12. ALBUTEROL [Concomitant]
     Active Substance: ALBUTEROL
     Dosage: 100 UG
  13. THRIVE COMPLETE [Concomitant]
     Dosage: 4 MG
  14. ZENHALE [Concomitant]
     Active Substance: FORMOTEROL FUMARATE\MOMETASONE FUROATE
     Dosage: 100 UG

REACTIONS (8)
  - Vitreous detachment [Not Recovered/Not Resolved]
  - Headache [Not Recovered/Not Resolved]
  - Ocular discomfort [Not Recovered/Not Resolved]
  - Tooth fracture [Not Recovered/Not Resolved]
  - Vitreous floaters [Not Recovered/Not Resolved]
  - Dyspnoea [Not Recovered/Not Resolved]
  - Condition aggravated [Unknown]
  - Eye haemorrhage [Unknown]

NARRATIVE: CASE EVENT DATE: 20250101
